FAERS Safety Report 14681178 (Version 1)
Quarter: 2018Q1

REPORT INFORMATION
  Report Type: Spontaneous
  Country: JP (occurrence: JP)
  Receive Date: 20180326
  Receipt Date: 20180326
  Transmission Date: 20180509
  Serious: Yes (Hospitalization)
  Sender: FDA-Public Use
  Company Number: JP-SA-2018SA077960

PATIENT
  Sex: Male

DRUGS (6)
  1. SOLOSTAR [Suspect]
     Active Substance: DEVICE
  2. APIDRA SOLOSTAR [Suspect]
     Active Substance: INSULIN GLULISINE
     Route: 058
  3. SOLOSTAR [Suspect]
     Active Substance: DEVICE
  4. LANTUS SOLOSTAR [Concomitant]
     Active Substance: INSULIN GLARGINE
     Route: 051
     Dates: end: 2017
  5. SOLOSTAR [Concomitant]
     Active Substance: DEVICE
     Dates: end: 2017
  6. LANTUS XR [Suspect]
     Active Substance: INSULIN GLARGINE
     Route: 058

REACTIONS (3)
  - Hypoglycaemia [Unknown]
  - Fall [Unknown]
  - Product use issue [Unknown]
